FAERS Safety Report 6449455-1 (Version None)
Quarter: 2009Q4

REPORT INFORMATION
  Report Type: 
  Country: None (occurrence: None)
  Receive Date: 20091120
  Receipt Date: 20091109
  Transmission Date: 20100525
  Serious: Yes (Hospitalization, Other)
  Sender: FDA-Public Use
  Company Number: PHHY2009JP47075

PATIENT
  Age: 56 Year
  Sex: Male

DRUGS (4)
  1. NEORAL [Suspect]
     Indication: PSORIATIC ARTHROPATHY
     Dosage: UNK
     Dates: start: 19990101
  2. PREDNISOLONE [Concomitant]
     Indication: PSORIATIC ARTHROPATHY
     Dosage: UNK
     Dates: start: 19990101, end: 20030101
  3. PREDNISOLONE [Concomitant]
     Route: 048
  4. PREDNISOLONE [Concomitant]
     Route: 061

REACTIONS (16)
  - ARTERIAL STENOSIS [None]
  - ARTHRALGIA [None]
  - DUODENAL ULCER [None]
  - EATING DISORDER [None]
  - ERYTHRODERMIC PSORIASIS [None]
  - GASTROENTERITIS STAPHYLOCOCCAL [None]
  - JOINT SWELLING [None]
  - PERICARDITIS [None]
  - PERICARDITIS INFECTIVE [None]
  - PNEUMONIA [None]
  - RASH [None]
  - RASH GENERALISED [None]
  - RENAL FAILURE CHRONIC [None]
  - SEPSIS [None]
  - SEPTIC SHOCK [None]
  - STAPHYLOCOCCAL SEPSIS [None]
